FAERS Safety Report 4410794-7 (Version None)
Quarter: 2004Q2

REPORT INFORMATION
  Report Type: 
  Country: None (occurrence: None)
  Receive Date: 20040630
  Receipt Date: 20040413
  Transmission Date: 20050107
  Serious: No
  Sender: FDA-Public Use
  Company Number: 04P-163-0257348-00

PATIENT
  Age: 47 Year
  Sex: Male
  Weight: 74.3899 kg

DRUGS (13)
  1. HUMIRA [Suspect]
     Indication: RHEUMATOID ARTHRITIS
     Dosage: 40 MG, 1 IN 2 WK, SUBCUTANEOUS
     Route: 058
     Dates: start: 20040217
  2. CALCIUM CARBONATE [Concomitant]
  3. DICYCLOMINE HCL [Concomitant]
  4. CELECOXIB [Concomitant]
  5. ALENDRONATE SODIUM [Concomitant]
  6. ATENOLOL [Concomitant]
  7. TRAMADOL HCL [Concomitant]
  8. RANITIDINE HYDROCHLORIDE [Concomitant]
  9. PREDNISONE [Concomitant]
  10. ATORVASTATIN CALCIUM [Concomitant]
  11. MULTI-VITAMINS [Concomitant]
  12. BUDESONIDE [Concomitant]
  13. LEFLUNOMIDE [Concomitant]

REACTIONS (1)
  - FATIGUE [None]
